FAERS Safety Report 4930260-X (Version None)
Quarter: 2006Q1

REPORT INFORMATION
  Report Type: 
  Country: None (occurrence: None)
  Receive Date: 20060224
  Receipt Date: 20060213
  Transmission Date: 20060701
  Serious: Yes (Hospitalization)
  Sender: FDA-Public Use
  Company Number: 2006BI001527

PATIENT
  Age: 42 Year
  Sex: Female
  Weight: 68.0396 kg

DRUGS (2)
  1. AVONEX [Suspect]
     Indication: MULTIPLE SCLEROSIS
     Dosage: 30 UG; QW; IM
     Route: 030
     Dates: start: 20030101
  2. ZOLOFT [Concomitant]

REACTIONS (6)
  - APHASIA [None]
  - CONDITION AGGRAVATED [None]
  - DYSARTHRIA [None]
  - INFLUENZA LIKE ILLNESS [None]
  - INJECTION SITE PAIN [None]
  - MULTIPLE SCLEROSIS [None]
